FAERS Safety Report 5011944-4 (Version None)
Quarter: 2006Q2

REPORT INFORMATION
  Report Type: 
  Country: None (occurrence: None)
  Receive Date: 20060526
  Receipt Date: 20060518
  Transmission Date: 20061013
  Serious: Yes (Hospitalization)
  Sender: FDA-Public Use
  Company Number: FR-ROCHE-448701

PATIENT
  Age: 57 Year
  Sex: Male
  Weight: 80 kg

DRUGS (4)
  1. NAPROXEN [Suspect]
     Indication: ANKYLOSING SPONDYLITIS
     Dosage: TAKEN WHEN NEEDED
     Route: 048
     Dates: start: 20051020
  2. NEXIUM [Suspect]
     Indication: DRUG USE FOR UNKNOWN INDICATION
     Route: 048
     Dates: start: 20050803
  3. REMICADE [Suspect]
     Indication: ANKYLOSING SPONDYLITIS
     Dosage: DOSAGE: 400 MG PER CYCLE
     Route: 042
     Dates: start: 20050120, end: 20060221
  4. METHOTREXATE [Suspect]
     Indication: ANKYLOSING SPONDYLITIS
     Dosage: 4 TABLETS PER WEEK
     Route: 048
     Dates: start: 20050803

REACTIONS (4)
  - GUTTATE PSORIASIS [None]
  - PRURITUS [None]
  - PSORIASIS [None]
  - RASH MACULO-PAPULAR [None]
